FAERS Safety Report 6146214-4 (Version None)
Quarter: 2009Q2

REPORT INFORMATION
  Report Type: 
  Country: None (occurrence: None)
  Receive Date: 20090407
  Receipt Date: 20090331
  Transmission Date: 20091009
  Serious: Yes (Death, Other)
  Sender: FDA-Public Use
  Company Number: PHHY2009CA11540

PATIENT
  Sex: Male

DRUGS (5)
  1. EXJADE [Suspect]
     Indication: IRON OVERLOAD
     Dosage: 15 MG/KG
     Route: 048
     Dates: start: 20080901, end: 20090219
  2. EXJADE [Suspect]
     Indication: CHRONIC MYELOID LEUKAEMIA
     Dosage: 20 MG/KG
  3. ACE INHIBITOR NOS [Concomitant]
  4. BLOOD TRANSFUSION, AUXILIARY PRODUCTS [Concomitant]
  5. HYDREA [Concomitant]
     Indication: CHRONIC MYELOID LEUKAEMIA
     Dosage: 100 MG DAILY
     Route: 048
     Dates: start: 20070101, end: 20090219

REACTIONS (10)
  - ANOREXIA [None]
  - ASCITES [None]
  - ASTHENIA [None]
  - DYSPNOEA [None]
  - HEPATIC FAILURE [None]
  - HEPATOMEGALY [None]
  - JAUNDICE [None]
  - MYELODYSPLASTIC SYNDROME [None]
  - NAUSEA [None]
  - SPLENOMEGALY [None]
